FAERS Safety Report 5227707-0 (Version None)
Quarter: 2007Q1

REPORT INFORMATION
  Report Type: 
  Country: None (occurrence: None)
  Receive Date: 20070202
  Receipt Date: 20070123
  Transmission Date: 20070707
  Serious: Yes (Life-Threatening, Hospitalization, Other)
  Sender: FDA-Public Use
  Company Number: US-PFIZER INC-2006109917

PATIENT
  Sex: Female
  Weight: 78 kg

DRUGS (5)
  1. GEODON [Suspect]
     Indication: BIPOLAR I DISORDER
     Route: 048
     Dates: start: 20060615, end: 20060905
  2. GEODON [Suspect]
     Indication: DRUG DEPENDENCE
  3. SEROQUEL [Concomitant]
     Dosage: DAILY DOSE:50MG
     Route: 048
  4. VISTARIL [Concomitant]
     Dosage: DAILY DOSE:50MG-TEXT:AS NEEDED
     Route: 048
     Dates: end: 20060905
  5. METHADONE HCL [Concomitant]
     Dosage: DAILY DOSE:85MG

REACTIONS (8)
  - CARDIAC ARREST [None]
  - CONFUSIONAL STATE [None]
  - CONVULSION [None]
  - DISORIENTATION [None]
  - INTUBATION [None]
  - LOSS OF CONSCIOUSNESS [None]
  - RESPIRATORY ARREST [None]
  - TORSADE DE POINTES [None]
